FAERS Safety Report 7571478-X (Version None)
Quarter: 2011Q2

REPORT INFORMATION
  Report Type: 
  Country: None (occurrence: None)
  Receive Date: 20110624
  Receipt Date: 20110617
  Transmission Date: 20111010
  Serious: No
  Sender: FDA-Public Use
  Company Number: US-PFIZER INC-2010154433

PATIENT
  Sex: Female
  Weight: 70.748 kg

DRUGS (7)
  1. GEODON [Suspect]
     Indication: BIPOLAR DISORDER
     Dosage: 140 MG, DAILY AT HS
     Dates: start: 20070101, end: 20110101
  2. EFFEXOR [Concomitant]
     Indication: BIPOLAR DISORDER
     Dosage: 300 MG, UNK
     Route: 048
     Dates: start: 20000101
  3. REQUIP [Concomitant]
     Indication: RESTLESS LEGS SYNDROME
     Dosage: 1.5 MG, UNK
     Route: 048
     Dates: start: 20070101
  4. ASPIRIN [Concomitant]
     Indication: PROPHYLAXIS
     Dosage: 81 MG, UNK
     Route: 048
     Dates: start: 20070101
  5. SIMVASTATIN [Concomitant]
     Indication: BLOOD CHOLESTEROL INCREASED
     Dosage: 40 MG, UNK
     Route: 048
     Dates: start: 20060101
  6. TRILEPTAL [Concomitant]
     Indication: BIPOLAR DISORDER
     Dosage: 300 MG, UNK
     Route: 048
     Dates: start: 20000101
  7. PLAVIX [Concomitant]
     Dosage: 75 MG, UNK
     Route: 048
     Dates: start: 20060101

REACTIONS (2)
  - SENSATION OF FOREIGN BODY [None]
  - ANXIETY [None]
